FAERS Safety Report 5072924-6 (Version None)
Quarter: 2006Q3

REPORT INFORMATION
  Report Type: 
  Country: None (occurrence: None)
  Receive Date: 20060802
  Receipt Date: 20060717
  Transmission Date: 20061208
  Serious: Yes (Death)
  Sender: FDA-Public Use
  Company Number: 8017577

PATIENT
  Age: 74 Year
  Sex: Female
  Weight: 75 kg

DRUGS (5)
  1. KEPPRA [Suspect]
     Indication: PARTIAL SEIZURES
     Dosage: 1500 MG 2/D IV
     Route: 042
     Dates: start: 20060617, end: 20060617
  2. ACYCLOVIR [Suspect]
     Indication: ENCEPHALITIS VIRAL
     Dosage: 750 MG 3/D IV
     Route: 042
     Dates: start: 20060617, end: 20060618
  3. UNACID [Suspect]
     Indication: ENCEPHALITIS VIRAL
     Dosage: 3 G 3/D IV
     Route: 042
     Dates: start: 20060617, end: 20060618
  4. TAVOR        (LORAZEPAM) [Suspect]
     Indication: PARTIAL SEIZURES
     Dosage: 1 MG 2/D IV
     Route: 042
     Dates: start: 20060615
  5. MIDAZOLAM HYDROCHLORIDE [Suspect]
     Indication: PARTIAL SEIZURES
     Dates: start: 20060615

REACTIONS (7)
  - ACUTE MYOCARDIAL INFARCTION [None]
  - ARRHYTHMIA [None]
  - CARDIAC FAILURE ACUTE [None]
  - DIABETIC HYPEROSMOLAR COMA [None]
  - ENCEPHALITIS VIRAL [None]
  - PARTIAL SEIZURES [None]
  - SUDDEN CARDIAC DEATH [None]
